FAERS Safety Report 17479729 (Version 1)
Quarter: 2020Q1

REPORT INFORMATION
  Report Type: Spontaneous
  Country: CN (occurrence: CN)
  Receive Date: 20200229
  Receipt Date: 20200229
  Transmission Date: 20200409
  Serious: Yes (Other)
  Sender: FDA-Public Use
  Company Number: NVSC2020CN055335

PATIENT
  Sex: Male

DRUGS (3)
  1. BRIGATINIB [Suspect]
     Active Substance: BRIGATINIB
     Indication: PRODUCT USED FOR UNKNOWN INDICATION
     Dosage: UNK
     Route: 048
     Dates: start: 20200112
  2. BRIGATINIB [Suspect]
     Active Substance: BRIGATINIB
     Dosage: UNK
     Route: 048
     Dates: start: 20200206
  3. CERITINIB [Suspect]
     Active Substance: CERITINIB
     Indication: LUNG NEOPLASM MALIGNANT
     Dosage: UNK
     Route: 048
     Dates: start: 2019

REACTIONS (9)
  - Ascites [Recovering/Resolving]
  - Protein deficiency [Unknown]
  - Renal impairment [Unknown]
  - Urine output decreased [Unknown]
  - Hepatic function abnormal [Unknown]
  - Oliguria [Unknown]
  - Chromaturia [Unknown]
  - Metastases to liver [Unknown]
  - Vomiting [Unknown]
